FAERS Safety Report 12900453 (Version 2)
Quarter: 2016Q4

REPORT INFORMATION
  Report Type: Spontaneous
  Country: US (occurrence: US)
  Receive Date: 20161101
  Receipt Date: 20161130
  Transmission Date: 20170207
  Serious: No
  Sender: FDA-Public Use
  Company Number: US-009507513-1610USA016923

PATIENT
  Sex: Female

DRUGS (1)
  1. FOLLISTIM [Suspect]
     Active Substance: FOLLITROPIN
     Indication: PRODUCT USED FOR UNKNOWN INDICATION
     Dosage: 900 IU, UNSPECIFIED FREQUENCY
     Route: 058

REACTIONS (4)
  - Anovulatory cycle [Unknown]
  - Menstrual disorder [Unknown]
  - Product quality issue [Unknown]
  - Drug dose omission [Unknown]
